FAERS Safety Report 15230995 (Version 2)
Quarter: 2019Q3

REPORT INFORMATION
  Report Type: Spontaneous
  Country: US (occurrence: US)
  Receive Date: 20180802
  Receipt Date: 20190805
  Transmission Date: 20191004
  Serious: Yes (Other)
  Sender: FDA-Public Use
  Company Number: US-ACCORD-063813

PATIENT
  Age: 46 Year
  Sex: Female
  Weight: 89.81 kg

DRUGS (9)
  1. EMEND [Concomitant]
     Active Substance: APREPITANT
     Dates: start: 20120802
  2. DECADRON [Concomitant]
     Active Substance: DEXAMETHASONE
     Dates: start: 20120802
  3. PEPCID [Concomitant]
     Active Substance: FAMOTIDINE
     Dates: start: 20120802
  4. NEULASTA [Concomitant]
     Active Substance: PEGFILGRASTIM
     Route: 058
     Dates: start: 20120803
  5. MINOXIDIL. [Concomitant]
     Active Substance: MINOXIDIL
  6. PARAPLATIN [Concomitant]
     Active Substance: CARBOPLATIN
     Route: 042
     Dates: start: 20120802
  7. ALOXI [Concomitant]
     Active Substance: PALONOSETRON HYDROCHLORIDE
     Dates: start: 20120802
  8. DOCETAXEL ACCORD [Suspect]
     Active Substance: DOCETAXEL
     Indication: BREAST CANCER
     Dosage: NUMBER OF CYCLES: 06
     Route: 042
     Dates: start: 20120321, end: 20120802
  9. HERCEPTIN [Suspect]
     Active Substance: TRASTUZUMAB
     Indication: BREAST CANCER
     Dosage: NUMBER OF CYCLES: 06
     Route: 042
     Dates: start: 20120321, end: 20120802

REACTIONS (1)
  - Alopecia [Not Recovered/Not Resolved]

NARRATIVE: CASE EVENT DATE: 2012
